FAERS Safety Report 7303884-2 (Version None)
Quarter: 2011Q1

REPORT INFORMATION
  Report Type: 
  Country: None (occurrence: None)
  Receive Date: 20110221
  Receipt Date: 20110216
  Transmission Date: 20110831
  Serious: Yes (Hospitalization)
  Sender: FDA-Public Use
  Company Number: B0700181A

PATIENT
  Sex: Male

DRUGS (1)
  1. CLAMOXYL [Suspect]
     Indication: BRONCHITIS
     Route: 065
     Dates: start: 20110205, end: 20110205

REACTIONS (7)
  - HYPOTENSION [None]
  - DYSPNOEA [None]
  - LIP OEDEMA [None]
  - MALAISE [None]
  - PARAESTHESIA [None]
  - ANAPHYLACTIC SHOCK [None]
  - URTICARIA [None]
